FAERS Safety Report 18931512 (Version 1)
Quarter: 2021Q1

REPORT INFORMATION
  Report Type: Spontaneous
  Country: US (occurrence: US)
  Receive Date: 20210223
  Receipt Date: 20210223
  Transmission Date: 20210420
  Serious: No
  Sender: FDA-Public Use
  Company Number: US-IGSA-SR10009741

PATIENT
  Age: 45 Year
  Sex: Male
  Weight: 76.8 kg

DRUGS (10)
  1. SEROSTIM [Concomitant]
     Active Substance: SOMATROPIN
  2. ALPRAZOLAM. [Concomitant]
     Active Substance: ALPRAZOLAM
  3. PROLASTIN?C LIQUID [Suspect]
     Active Substance: .ALPHA.1-PROTEINASE INHIBITOR HUMAN
     Indication: ALPHA-1 ANTITRYPSIN DEFICIENCY
     Dosage: 4609 MG, Q.WK.
     Route: 042
     Dates: start: 20200105
  4. ZYRTEC [Concomitant]
     Active Substance: CETIRIZINE HYDROCHLORIDE
  5. TRIAMCINOLONE ACETONIDE. [Concomitant]
     Active Substance: TRIAMCINOLONE ACETONIDE
  6. CETIRIZINE HCL [Concomitant]
     Active Substance: CETIRIZINE HYDROCHLORIDE
  7. PATANASE [Concomitant]
     Active Substance: OLOPATADINE HYDROCHLORIDE
  8. FLUTICASONE PROPIONATE. [Concomitant]
     Active Substance: FLUTICASONE PROPIONATE
  9. TRETINOIN. [Concomitant]
     Active Substance: TRETINOIN
  10. ALBUTEROL SULFATE. [Concomitant]
     Active Substance: ALBUTEROL SULFATE

REACTIONS (4)
  - Rash [Unknown]
  - Pruritus [Unknown]
  - Skin disorder [Unknown]
  - Dry skin [Unknown]

NARRATIVE: CASE EVENT DATE: 201911
